FAERS Safety Report 10384025 (Version 1)
Quarter: 2014Q1

REPORT INFORMATION
  Report Type: Spontaneous
  Country: US (occurrence: None)
  Receive Date: 20140306
  Receipt Date: 20140306
  Transmission Date: 20141002
  Serious: Yes (Hospitalization)
  Sender: FDA-Public Use
  Company Number: 163-21880-13110084

PATIENT
  Age: 78 Year
  Sex: Female

DRUGS (7)
  1. REVLIMID (LENALIDOMIDE) (5 MILLIGRAM, CAPSULES) [Suspect]
     Indication: PLASMA CELL MYELOMA
     Route: 048
     Dates: start: 201305, end: 20130523
  2. SERTRALINE [Concomitant]
  3. ALENDRONATE (ALENDRONATE SODIUM) [Concomitant]
  4. FUROSEMIDE [Concomitant]
  5. LORAZEPAM [Concomitant]
  6. ATENOLOL [Concomitant]
  7. LEVOTHYROXINE [Concomitant]

REACTIONS (2)
  - Pulmonary embolism [None]
  - Rash [None]
